FAERS Safety Report 12870769 (Version 1)
Quarter: 2016Q4

REPORT INFORMATION
  Report Type: Spontaneous
  Country: GB (occurrence: GB)
  Receive Date: 20161021
  Receipt Date: 20161021
  Transmission Date: 20170207
  Serious: Yes (Other)
  Sender: FDA-Public Use
  Company Number: GB-BAYER-2016-199747

PATIENT
  Age: 40 Year
  Sex: Female
  Weight: 86.17 kg

DRUGS (3)
  1. MIRENA [Suspect]
     Active Substance: LEVONORGESTREL
     Indication: DYSMENORRHOEA
     Dosage: 20 MCG/24HR, CONT
     Route: 015
     Dates: start: 20150808
  2. CODEINE PHOSPHATE [Concomitant]
     Active Substance: CODEINE PHOSPHATE
  3. RECTOGESIC [Concomitant]
     Active Substance: NITROGLYCERIN
     Dosage: UNK

REACTIONS (7)
  - Mood swings [Not Recovered/Not Resolved]
  - Abnormal weight gain [Not Recovered/Not Resolved]
  - Anger [Unknown]
  - Impatience [Unknown]
  - Dysmenorrhoea [Not Recovered/Not Resolved]
  - Tearfulness [Unknown]
  - Disturbance in attention [Unknown]

NARRATIVE: CASE EVENT DATE: 20150808
